FAERS Safety Report 16324039 (Version 1)
Quarter: 2019Q2

REPORT INFORMATION
  Report Type: Spontaneous
  Country: US (occurrence: US)
  Receive Date: 20190517
  Receipt Date: 20190517
  Transmission Date: 20190711
  Serious: Yes (Hospitalization, Other)
  Sender: FDA-Public Use
  Company Number: US-CPL-001013

PATIENT
  Age: 85 Year
  Sex: Male

DRUGS (2)
  1. DONEPEZIL. [Suspect]
     Active Substance: DONEPEZIL
     Indication: COGNITIVE DISORDER
     Dosage: AT BEDTIME ALSO RECEIVED 5MG AT BEDTIME FOR 4 WEEKS + THEN MORNING ADMINISTRATION
  2. DONEPEZIL. [Suspect]
     Active Substance: DONEPEZIL
     Indication: COGNITIVE DISORDER
     Dosage: MORNING ADMINISTRATION

REACTIONS (2)
  - Automatism [Recovered/Resolved]
  - Off label use [Unknown]
